FAERS Safety Report 5222858-9 (Version None)
Quarter: 2007Q1

REPORT INFORMATION
  Report Type: 
  Country: None (occurrence: None)
  Receive Date: 20061208
  Receipt Date: 20060404
  Transmission Date: 20070707
  Serious: Yes (Other)
  Sender: FDA-Public Use
  Company Number: 2006019294

PATIENT
  Sex: Male
  Weight: 117.9352 kg

DRUGS (6)
  1. VIAGRA [Suspect]
     Indication: ERECTILE DYSFUNCTION
     Dosage: 50 MG (50 MG, 1 AS NECESSARY), ORAL
     Route: 048
     Dates: start: 20000101
  2. DRUGS USED IN ERECTILE DYSFUNCTION (OTHER UROLOGICALS, INCL ANTISPASMO [Suspect]
     Indication: ERECTILE DYSFUNCTION
     Dosage: INTRACAVERNOSA
     Route: 017
  3. LISINOPRIL [Concomitant]
  4. ATENOLOL [Concomitant]
  5. ASPIRIN [Concomitant]
  6. CENTRUM SILVER (ASCORBIC ACID, CALCIUM, MINERALS NOS, RETINOL, TOCOPHE [Concomitant]

REACTIONS (5)
  - ADMINISTRATION SITE PAIN [None]
  - CEREBROVASCULAR ACCIDENT [None]
  - DRUG INEFFECTIVE [None]
  - ERECTILE DYSFUNCTION [None]
  - ERECTION INCREASED [None]
